FAERS Safety Report 8836595 (Version 1)
Quarter: 2012Q4

REPORT INFORMATION
  Report Type: Spontaneous
  Country: FR (occurrence: None)
  Receive Date: 20121009
  Receipt Date: 20121009
  Transmission Date: 20130627
  Serious: Yes (Hospitalization)
  Sender: FDA-Public Use
  Company Number: FRA-CLT-2012070

PATIENT
  Age: 3 Month
  Sex: Female

DRUGS (5)
  1. CYSTADANE [Suspect]
     Indication: HOMOCYSTINURIA
     Route: 048
     Dates: start: 20061024
  2. VITAMIN B12 [Concomitant]
  3. CARNITINE [Concomitant]
  4. LEVOCARNIL [Concomitant]
  5. FOLINIC ACID [Concomitant]

REACTIONS (16)
  - Altered state of consciousness [None]
  - Personality disorder [None]
  - Infection [None]
  - Pyrexia [None]
  - Nasopharyngitis [None]
  - Gastrointestinal viral infection [None]
  - Metabolic disorder [None]
  - Vomiting [None]
  - Varicella [None]
  - Faeces hard [None]
  - Sepsis syndrome [None]
  - Hyperthermia [None]
  - Influenza [None]
  - Kyphosis [None]
  - Oral disorder [None]
  - Blood homocysteine increased [None]
